FAERS Safety Report 5778600-6 (Version None)
Quarter: 2008Q2

REPORT INFORMATION
  Report Type: 
  Country: None (occurrence: None)
  Receive Date: 20080619
  Receipt Date: 20080611
  Transmission Date: 20081010
  Serious: Yes (Other)
  Sender: FDA-Public Use
  Company Number: JP-ASTRAZENECA-2008AC01541

PATIENT
  Age: 77 Year
  Sex: Female

DRUGS (12)
  1. MEROPENEM [Suspect]
     Indication: FEBRILE NEUTROPENIA
  2. ALLOPURINOL [Suspect]
     Indication: PROPHYLAXIS
  3. TOSUFLOXACIN [Suspect]
     Indication: FEBRILE NEUTROPENIA
  4. VANCOMYCIN [Suspect]
     Indication: FEBRILE NEUTROPENIA
  5. CIPROFLOXACIN [Suspect]
     Indication: FEBRILE NEUTROPENIA
  6. FLUCONAZOLE [Suspect]
     Indication: FEBRILE NEUTROPENIA
  7. MICAFUNGIN [Suspect]
     Indication: FEBRILE NEUTROPENIA
  8. CEFEPIME [Suspect]
     Indication: FEBRILE NEUTROPENIA
  9. CYTARABINE [Suspect]
     Indication: ACUTE MONOCYTIC LEUKAEMIA
  10. CYTARABINE [Suspect]
     Indication: LEUKAEMIA CUTIS
  11. IDARUBICIN HCL [Suspect]
     Indication: ACUTE MONOCYTIC LEUKAEMIA
  12. IDARUBICIN HCL [Suspect]
     Indication: LEUKAEMIA CUTIS

REACTIONS (1)
  - DRUG RASH WITH EOSINOPHILIA AND SYSTEMIC SYMPTOMS [None]
